FAERS Safety Report 16595189 (Version 7)
Quarter: 2020Q2

REPORT INFORMATION
  Report Type: Report from Study
  Country: US (occurrence: US)
  Receive Date: 20190718
  Receipt Date: 20200521
  Transmission Date: 20200713
  Serious: Yes (Hospitalization)
  Sender: FDA-Public Use
  Company Number: US-ACTELION-A-NJ2018-176380

PATIENT
  Age: 70 Year
  Sex: Female
  Weight: 47.62 kg

DRUGS (4)
  1. ADEMPAS [Concomitant]
     Active Substance: RIOCIGUAT
  2. OPSUMIT [Suspect]
     Active Substance: MACITENTAN
     Indication: PULMONARY ARTERIAL HYPERTENSION
     Dosage: 10 MG, QD
     Route: 048
     Dates: start: 20180709
  3. ORENITRAM [Suspect]
     Active Substance: TREPROSTINIL
     Indication: PRODUCT USED FOR UNKNOWN INDICATION
     Dosage: UNK
     Route: 048
  4. ORENITRAM [Suspect]
     Active Substance: TREPROSTINIL
     Dosage: UNK
     Route: 048

REACTIONS (14)
  - Blood iron decreased [Unknown]
  - Iron deficiency [Unknown]
  - Weight decreased [Unknown]
  - Feeling cold [Unknown]
  - Chills [Unknown]
  - Viral infection [Unknown]
  - Transfusion [Unknown]
  - Swelling [Recovering/Resolving]
  - Candida infection [Unknown]
  - Pain [Unknown]
  - Pain in extremity [Unknown]
  - Dyspnoea [Unknown]
  - Nausea [Unknown]
  - Abdominal discomfort [Unknown]

NARRATIVE: CASE EVENT DATE: 201807
